FAERS Safety Report 7234850-3 (Version None)
Quarter: 2011Q1

REPORT INFORMATION
  Report Type: 
  Country: None (occurrence: None)
  Receive Date: 20110120
  Receipt Date: 20110110
  Transmission Date: 20110831
  Serious: Yes (Hospitalization)
  Sender: FDA-Public Use
  Company Number: FR-JNJFOC-20110103101

PATIENT
  Age: 65 Year
  Sex: Male
  Weight: 80 kg

DRUGS (4)
  1. BIGUANIDES [Concomitant]
     Indication: DIABETES MELLITUS
  2. INSULIN [Concomitant]
     Indication: DIABETES MELLITUS
     Dates: end: 20101201
  3. SULFONYLUREA AGENT [Concomitant]
     Indication: DIABETES MELLITUS
  4. STELARA [Suspect]
     Indication: PSORIASIS
     Route: 058
     Dates: start: 20101001

REACTIONS (4)
  - BACK PAIN [None]
  - HYPOGLYCAEMIA [None]
  - PSORIASIS [None]
  - GAIT DISTURBANCE [None]
